FAERS Safety Report 19261752 (Version 1)
Quarter: 2021Q2

REPORT INFORMATION
  Report Type: Spontaneous
  Country: PR (occurrence: PR)
  Receive Date: 20210515
  Receipt Date: 20210515
  Transmission Date: 20210717
  Serious: Yes (Life-Threatening, Hospitalization)
  Sender: FDA-Public Use
  Company Number: PR-TEVA-2021-PR-1910090

PATIENT
  Age: 21 Month
  Sex: Male

DRUGS (2)
  1. CARBOPLATIN. [Suspect]
     Active Substance: CARBOPLATIN
     Indication: OPTIC GLIOMA
     Route: 065
  2. VINCRISTINE [Suspect]
     Active Substance: VINCRISTINE
     Indication: OPTIC GLIOMA
     Route: 065

REACTIONS (4)
  - Shock [Recovering/Resolving]
  - Autoimmune haemolytic anaemia [Recovering/Resolving]
  - Loss of consciousness [Recovering/Resolving]
  - Jaundice [Recovering/Resolving]
